FAERS Safety Report 7709029-9 (Version None)
Quarter: 2011Q3

REPORT INFORMATION
  Report Type: 
  Country: None (occurrence: None)
  Receive Date: 20110825
  Receipt Date: 20110817
  Transmission Date: 20111222
  Serious: Yes (Hospitalization, Other)
  Sender: FDA-Public Use
  Company Number: US-ROCHE-684631

PATIENT
  Sex: Female

DRUGS (3)
  1. PEGASYS [Suspect]
     Indication: HEPATITIS C
     Route: 065
     Dates: start: 20100101, end: 20100316
  2. RIBAVIRIN [Suspect]
     Indication: HEPATITIS C
     Dosage: 1200 MG IN DIVIDED DOSES
     Route: 048
     Dates: start: 20100101, end: 20100316
  3. AMOXICILLIN [Suspect]
     Indication: EAR INFECTION
     Route: 065

REACTIONS (12)
  - VIRAL LOAD INCREASED [None]
  - EAR INFECTION [None]
  - DEAFNESS [None]
  - MENTAL DISORDER [None]
  - THYROID DISORDER [None]
  - FLANK PAIN [None]
  - RASH MACULAR [None]
  - OEDEMA PERIPHERAL [None]
  - INSOMNIA [None]
  - ANAEMIA [None]
  - HYDRONEPHROSIS [None]
  - NEURALGIA [None]
